FAERS Safety Report 10886192 (Version 1)
Quarter: 2015Q1

REPORT INFORMATION
  Report Type: Spontaneous
  Country: HU (occurrence: HU)
  Receive Date: 20150304
  Receipt Date: 20150304
  Transmission Date: 20150721
  Serious: Yes (Other)
  Sender: FDA-Public Use
  Company Number: HU-GALDERMA-HU15000606

PATIENT
  Age: 46 Year
  Sex: Female

DRUGS (2)
  1. BIODERMA SENSIBIO [Concomitant]
     Indication: PRODUCT USED FOR UNKNOWN INDICATION
  2. MIRVASO [Suspect]
     Active Substance: BRIMONIDINE TARTRATE
     Indication: ROSACEA
     Dosage: 3 MG/G
     Route: 061
     Dates: start: 20150129, end: 20150202

REACTIONS (5)
  - Erythema [Recovering/Resolving]
  - Application site pain [None]
  - Headache [Unknown]
  - Skin burning sensation [Recovering/Resolving]
  - Application site erythema [None]

NARRATIVE: CASE EVENT DATE: 20150202
